FAERS Safety Report 4620399-0 (Version None)
Quarter: 2005Q1

REPORT INFORMATION
  Report Type: 
  Country: None (occurrence: None)
  Receive Date: 20050324
  Receipt Date: 20050311
  Transmission Date: 20050727
  Serious: Yes (Hospitalization, Other)
  Sender: FDA-Public Use
  Company Number: 2005044019

PATIENT
  Sex: Male
  Weight: 88.4514 kg

DRUGS (2)
  1. CELEBREX [Suspect]
     Indication: PAIN
     Dosage: 200 MG (200 MG, 1 IN 1 D), ORAL
     Route: 048
     Dates: start: 20020101, end: 20020101
  2. VALPROATE SODIUM [Concomitant]

REACTIONS (5)
  - ARTHRALGIA [None]
  - CONVULSION [None]
  - DRY EYE [None]
  - GLAUCOMA [None]
  - PAIN [None]
